FAERS Safety Report 10790041 (Version 1)
Quarter: 2015Q1

REPORT INFORMATION
  Report Type: Spontaneous
  Country: US (occurrence: US)
  Receive Date: 20150212
  Receipt Date: 20150212
  Transmission Date: 20150721
  Serious: No
  Sender: FDA-Public Use
  Company Number: US-GLAXOSMITHKLINE-A1079973A

PATIENT

DRUGS (3)
  1. XANAX [Concomitant]
     Active Substance: ALPRAZOLAM
  2. VENTOLIN [Suspect]
     Active Substance: ALBUTEROL SULFATE
     Indication: FIBROSIS
     Route: 055
     Dates: start: 20140609
  3. SYNTHROID [Concomitant]
     Active Substance: LEVOTHYROXINE SODIUM

REACTIONS (3)
  - Adverse event [Unknown]
  - Dyspnoea [Unknown]
  - Device use error [Unknown]

NARRATIVE: CASE EVENT DATE: 201406
